FAERS Safety Report 7545198-1 (Version None)
Quarter: 2011Q2

REPORT INFORMATION
  Report Type: 
  Country: None (occurrence: None)
  Receive Date: 20110531
  Receipt Date: 20110512
  Transmission Date: 20111010
  Serious: Yes (Other)
  Sender: FDA-Public Use
  Company Number: 2011028717

PATIENT
  Age: 20 Year
  Sex: Female
  Weight: 70.3075 kg

DRUGS (47)
  1. HIZENTRA [Suspect]
     Indication: HYPOTHYROIDISM
     Dosage: SEE IMAGE: SUBCUTANEOUS
     Route: 058
     Dates: start: 20100903
  2. HIZENTRA [Suspect]
     Indication: IMMUNODEFICIENCY COMMON VARIABLE
     Dosage: SEE IMAGE: SUBCUTANEOUS
     Route: 058
     Dates: start: 20100903
  3. HIZENTRA [Suspect]
     Indication: IMMUNODEFICIENCY
     Dosage: SEE IMAGE: SUBCUTANEOUS
     Route: 058
     Dates: start: 20100903
  4. HIZENTRA [Suspect]
     Indication: RHINITIS ALLERGIC
     Dosage: SEE IMAGE: SUBCUTANEOUS
     Route: 058
     Dates: start: 20100903
  5. HIZENTRA [Suspect]
     Dosage: 2 GM 10 ML VIAL, SUBCUTANEOUS
     Route: 058
  6. HIZENTRA [Suspect]
     Dosage: 4 GM 20 ML VIAL, SUBCUTANEOUS
     Route: 058
  7. SPIRIVA [Concomitant]
  8. FISH OIL [Concomitant]
  9. ESTER C (CALCIUM ASCORBATE) [Concomitant]
  10. MULTIVITAMIN (ACCOMIN MULTIVITAMIN) [Concomitant]
  11. LUNESTA [Concomitant]
  12. HIZENTRA [Suspect]
     Dosage: 2 GM 10 ML VIAL, SUBCUTANEOUS
     Route: 058
  13. PULMICORT [Concomitant]
  14. LYBREL (LEVONORGESTREL) [Concomitant]
  15. HIZENTRA [Suspect]
     Dosage: 2 GM 10 ML VIAL, SUBCUTANEOUS
     Route: 058
  16. ATROVENT [Concomitant]
  17. LEVOTHYROXINE SODIUM [Concomitant]
  18. HIZENTRA [Suspect]
     Dosage: 2GM 10ML ML VIAL, SUBCUTANEOUS
     Route: 058
  19. HIZENTRA [Suspect]
     Dosage: 4 GM 20 ML VIAL, SUBCUTANEOUS
     Route: 058
  20. CLINDAMYCIN [Concomitant]
  21. CYMBALTA [Concomitant]
  22. RITALIN [Concomitant]
  23. CALCIUM CARBONATE [Concomitant]
  24. XOPENEX [Concomitant]
  25. MIGRANAL (DIHYDROERGOTAMINE MESILATE) [Concomitant]
  26. HIZENTRA [Suspect]
     Dosage: 2 GM 10M VIAL, SUBCUTANEOUS
     Route: 058
  27. HIZENTRA [Suspect]
     Dosage: 2 G, 10 ML VIAL, SUBCUTANEOUS
     Route: 058
  28. HIZENTRA [Suspect]
     Dosage: 4 GM 20 ML VIAL, SUBCUTANEOUS
     Route: 058
  29. OMEPRAZOLE [Concomitant]
  30. NEO-MED NASAL (NEO-MEDROL) [Concomitant]
  31. ULTRAM [Concomitant]
  32. SINGULAIR [Concomitant]
  33. ACETAMINOPHEN [Concomitant]
  34. HIZENTRA [Suspect]
     Dosage: SUBCUTANEOUS
     Route: 057
  35. CEFTIN [Concomitant]
  36. CRANBERRY (VACCINIUM MACROCARPON) [Concomitant]
  37. HIZENTRA [Suspect]
     Dosage: SUBCUTANEOUS
     Route: 058
  38. HIZENTRA [Suspect]
     Dosage: 4 GM 20 ML VIAL, SUBCUTANEOUS
     Route: 058
  39. HIZENTRA [Suspect]
     Dosage: 4 GM 20 ML VIAL, SUBCUTANEOUS
     Route: 058
  40. HIZENTRA [Suspect]
     Dosage: 4 GM 20 ML VIAL, SUBCUTANEOUS
     Route: 058
  41. NEURONTIN [Concomitant]
  42. ACIDOPHILUS (LACTOBACILLUS ACIDOPHILUS) [Concomitant]
  43. VITAMIN D [Concomitant]
  44. ACETAMINOPHEN [Concomitant]
  45. HIZENTRA [Suspect]
     Dosage: 2 GM 10 ML VIAL, SUBCUTANEOUS
     Route: 058
  46. HIZENTRA [Suspect]
     Dosage: 4 GM 20 ML VIAL, SUBCUTANEOUS
     Route: 058
  47. LACTAID (TILACTASE) [Concomitant]

REACTIONS (4)
  - FATIGUE [None]
  - SINUSITIS [None]
  - WHEEZING [None]
  - DYSPNOEA [None]
